FAERS Safety Report 20415298 (Version 2)
Quarter: 2022Q1

REPORT INFORMATION
  Report Type: Report from Study
  Country: DO (occurrence: DO)
  Receive Date: 20220202
  Receipt Date: 20220216
  Transmission Date: 20220423
  Serious: Yes (Other)
  Sender: FDA-Public Use
  Company Number: DO-NOVARTISPH-PHHY2018DO005435

PATIENT
  Age: 29 Year
  Sex: Female

DRUGS (7)
  1. GILENYA [Suspect]
     Active Substance: FINGOLIMOD HYDROCHLORIDE
     Indication: Multiple sclerosis
     Dosage: 0.5 MG
     Route: 048
  2. GILENYA [Suspect]
     Active Substance: FINGOLIMOD HYDROCHLORIDE
     Indication: Relapsing-remitting multiple sclerosis
     Dosage: 0.5 MG, QD
     Route: 048
     Dates: start: 20180515
  3. GILENYA [Suspect]
     Active Substance: FINGOLIMOD HYDROCHLORIDE
     Dosage: UNK
     Route: 065
     Dates: start: 202109
  4. GILENYA [Suspect]
     Active Substance: FINGOLIMOD HYDROCHLORIDE
     Dosage: UNK
     Route: 065
     Dates: end: 202111
  5. GILENYA [Suspect]
     Active Substance: FINGOLIMOD HYDROCHLORIDE
     Dosage: 0.5 MG, QD
     Route: 048
     Dates: start: 20220209
  6. BIOTIN [Concomitant]
     Active Substance: BIOTIN
     Indication: Product used for unknown indication
     Dosage: 5000 IU, UNK
     Route: 065
  7. CERAZETTE [Concomitant]
     Indication: Product used for unknown indication
     Dosage: 0.075 MG, QD
     Route: 048

REACTIONS (21)
  - Chest pain [Unknown]
  - Dyspnoea [Unknown]
  - Multiple sclerosis [Unknown]
  - Peripheral swelling [Recovered/Resolved]
  - Limb discomfort [Recovered/Resolved]
  - Pain [Unknown]
  - Feeling abnormal [Unknown]
  - Muscular weakness [Unknown]
  - Abdominal pain upper [Unknown]
  - Lymphocyte count decreased [Unknown]
  - COVID-19 [Unknown]
  - Paraesthesia [Unknown]
  - Temperature intolerance [Unknown]
  - Hypotension [Unknown]
  - Neuritis [Recovering/Resolving]
  - Pain in extremity [Unknown]
  - Headache [Unknown]
  - Cough [Unknown]
  - Dizziness [Not Recovered/Not Resolved]
  - Fatigue [Unknown]
  - Product dose omission issue [Unknown]

NARRATIVE: CASE EVENT DATE: 20210901
